FAERS Safety Report 8216142-9 (Version None)
Quarter: 2012Q1

REPORT INFORMATION
  Report Type: 
  Country: None (occurrence: None)
  Receive Date: 20120316
  Receipt Date: 20120308
  Transmission Date: 20120608
  Serious: Yes (Other)
  Sender: FDA-Public Use
  Company Number: US-GLAXOSMITHKLINE-A0896534A

PATIENT
  Sex: Male
  Weight: 175 kg

DRUGS (7)
  1. AVANDIA [Suspect]
     Indication: DIABETES MELLITUS
     Dosage: 8MG PER DAY
     Route: 048
     Dates: start: 20041028, end: 20080101
  2. METOPROLOL SUCCINATE [Concomitant]
  3. METFORMIN HYDROCHLORIDE [Concomitant]
  4. ALBUTEROL [Concomitant]
  5. GLYBURIDE [Concomitant]
  6. LIPITOR [Concomitant]
  7. LANTUS [Concomitant]

REACTIONS (3)
  - CHEST PAIN [None]
  - CARDIAC FAILURE CONGESTIVE [None]
  - CARDIOVASCULAR DISORDER [None]
